FAERS Safety Report 6326625-4 (Version None)
Quarter: 2009Q3

REPORT INFORMATION
  Report Type: 
  Country: None (occurrence: None)
  Receive Date: 20090825
  Receipt Date: 20090617
  Transmission Date: 20100115
  Serious: No
  Sender: FDA-Public Use
  Company Number: US-BAYER-200924418NA

PATIENT
  Age: 25 Year
  Sex: Female

DRUGS (3)
  1. YAZ [Suspect]
     Indication: DRUG USE FOR UNKNOWN INDICATION
     Route: 048
  2. YASMIN [Suspect]
     Indication: DRUG USE FOR UNKNOWN INDICATION
     Route: 048
  3. HERBAL SUPPLEMENTS [Concomitant]
     Indication: ACNE
     Dates: start: 20090611

REACTIONS (3)
  - ACNE [None]
  - DEPRESSED MOOD [None]
  - METRORRHAGIA [None]
